FAERS Safety Report 6072257 (Version 3)
Quarter: 2018Q2

REPORT INFORMATION
  Report Type: Spontaneous
  Country: JP (occurrence: JP)
  Receive Date: 20060626
  Receipt Date: 20180417
  Transmission Date: 20180711
  Serious: Yes (Hospitalization, Other)
  Sender: FDA-Public Use
  Company Number: PHBS2003JP04755

PATIENT
  Age: 64 Year
  Sex: Male
  Weight: 64 kg

DRUGS (2)
  1. IMATINIB [Suspect]
     Active Substance: IMATINIB
     Dosage: UNK
     Route: 048
     Dates: start: 20030128, end: 20030415
  2. IMATINIB [Suspect]
     Active Substance: IMATINIB
     Indication: CHRONIC MYELOID LEUKAEMIA
     Dosage: 400 MG, QD
     Route: 048
     Dates: start: 20030128, end: 20030415

REACTIONS (9)
  - Interstitial lung disease [Recovering/Resolving]
  - Chest X-ray abnormal [Recovering/Resolving]
  - Eosinophil count increased [Recovered/Resolved]
  - Blood lactate dehydrogenase increased [Unknown]
  - Dyspnoea [Recovering/Resolving]
  - White blood cell count increased [Unknown]
  - Diffuse alveolar damage [Unknown]
  - Platelet count decreased [Unknown]
  - Pulmonary eosinophilia [Recovered/Resolved]

NARRATIVE: CASE EVENT DATE: 20030415
